FAERS Safety Report 23587364 (Version 1)
Quarter: 2024Q1

REPORT INFORMATION
  Report Type: Spontaneous
  Country: US (occurrence: US)
  Receive Date: 20240301
  Receipt Date: 20240301
  Transmission Date: 20240410
  Serious: Yes (Hospitalization, Other)
  Sender: FDA-Public Use
  Company Number: US-ELI_LILLY_AND_COMPANY-US202402011431

PATIENT
  Age: 77 Year
  Sex: Male

DRUGS (2)
  1. HUMALOG [Suspect]
     Active Substance: INSULIN LISPRO
     Indication: Diabetes mellitus
     Dosage: UNK UNK, UNKNOWN
     Route: 065
  2. HUMALOG [Suspect]
     Active Substance: INSULIN LISPRO
     Dosage: UNK UNK, UNKNOWN
     Route: 065

REACTIONS (10)
  - Respiratory fume inhalation disorder [Unknown]
  - Hallucination [Unknown]
  - Fall [Unknown]
  - Tibia fracture [Unknown]
  - Arrhythmia [Unknown]
  - Thrombosis [Unknown]
  - Pulmonary embolism [Unknown]
  - Diabetic neuropathy [Unknown]
  - Paraesthesia [Unknown]
  - Pain in extremity [Unknown]
